FAERS Safety Report 5447625-2 (Version None)
Quarter: 2007Q3

REPORT INFORMATION
  Report Type: 
  Country: None (occurrence: None)
  Receive Date: 20070910
  Receipt Date: 20070829
  Transmission Date: 20080115
  Serious: Yes (Hospitalization)
  Sender: FDA-Public Use
  Company Number: GB-ROCHE-514640

PATIENT
  Age: 76 Year
  Sex: Female
  Weight: 101.6 kg

DRUGS (1)
  1. ORLISTAT [Suspect]
     Indication: OBESITY
     Route: 048
     Dates: start: 20070331

REACTIONS (2)
  - RESPIRATORY ARREST [None]
  - THROMBOSIS [None]
